FAERS Safety Report 5583476-6 (Version None)
Quarter: 2008Q1

REPORT INFORMATION
  Report Type: 
  Country: None (occurrence: None)
  Receive Date: 20080107
  Receipt Date: 20071212
  Transmission Date: 20080703
  Serious: No
  Sender: FDA-Public Use
  Company Number: US-BOEHRINGER INGELHEIM PHARMACEUTICALS, INC.-2007-BP-26142BP

PATIENT
  Sex: Female

DRUGS (1)
  1. FLOMAX [Suspect]
     Route: 048
     Dates: start: 20071212

REACTIONS (6)
  - EYE PRURITUS [None]
  - HYPERTENSION [None]
  - PALPITATIONS [None]
  - PRURITUS [None]
  - TREMOR [None]
  - VISION BLURRED [None]
